FAERS Safety Report 7092438-1 (Version None)
Quarter: 2010Q4

REPORT INFORMATION
  Report Type: 
  Country: None (occurrence: None)
  Receive Date: 20101110
  Receipt Date: 20101102
  Transmission Date: 20110411
  Serious: No
  Sender: FDA-Public Use
  Company Number: US-BAYER-201034819NA

PATIENT
  Age: 12 Year
  Sex: Female

DRUGS (1)
  1. MAGNEVIST [Suspect]
     Indication: NUCLEAR MAGNETIC RESONANCE IMAGING
     Dosage: RADIAL ARTERY LINE
     Route: 013
     Dates: start: 20100925, end: 20100925

REACTIONS (1)
  - NO ADVERSE EVENT [None]
